FAERS Safety Report 25674805 (Version 2)
Quarter: 2025Q3

REPORT INFORMATION
  Report Type: Spontaneous
  Country: CN (occurrence: CN)
  Receive Date: 20250813
  Receipt Date: 20250902
  Transmission Date: 20251021
  Serious: Yes (Life-Threatening, Hospitalization, Other)
  Sender: ALKEM
  Company Number: None

PATIENT
  Age: 73 Year
  Sex: Female

DRUGS (3)
  1. MYCOPHENOLATE MOFETIL [Suspect]
     Active Substance: MYCOPHENOLATE MOFETIL
     Indication: Immunosuppressant drug therapy
     Route: 048
     Dates: start: 2004
  2. CYCLOSPORINE [Suspect]
     Active Substance: CYCLOSPORINE
     Indication: Immunosuppressant drug therapy
     Route: 048
     Dates: start: 2004
  3. PREDNISONE ACETATE [Suspect]
     Active Substance: PREDNISONE ACETATE
     Indication: Immunosuppressant drug therapy
     Route: 048
     Dates: start: 2004

REACTIONS (8)
  - Squamous cell carcinoma [Recovered/Resolved]
  - Anal squamous cell carcinoma [Recovered/Resolved]
  - Vaginal cancer stage 0 [Recovered/Resolved]
  - Cervix carcinoma [Recovered/Resolved]
  - Vulvovaginal human papilloma virus infection [Unknown]
  - Pneumonia [Unknown]
  - Hepatitis B [Unknown]
  - Herpes zoster [Unknown]

NARRATIVE: CASE EVENT DATE: 20120101
